FAERS Safety Report 19361005 (Version 4)
Quarter: 2022Q2

REPORT INFORMATION
  Report Type: Report from Study
  Country: US (occurrence: None)
  Receive Date: 20210602
  Receipt Date: 20220615
  Transmission Date: 20220721
  Serious: No
  Sender: FDA-Public Use
  Company Number: US-US WORLDMEDS, LLC-USW202003-000609

PATIENT
  Age: 54 Year
  Sex: Male

DRUGS (13)
  1. APOKYN [Suspect]
     Active Substance: APOMORPHINE HYDROCHLORIDE
     Indication: Product used for unknown indication
     Route: 058
     Dates: start: 2019
  2. APOKYN [Suspect]
     Active Substance: APOMORPHINE HYDROCHLORIDE
     Route: 058
     Dates: start: 201911
  3. APOKYN [Suspect]
     Active Substance: APOMORPHINE HYDROCHLORIDE
     Route: 058
     Dates: start: 202002
  4. APOKYN [Suspect]
     Active Substance: APOMORPHINE HYDROCHLORIDE
     Dosage: 30MG/3ML
     Route: 058
     Dates: start: 201910
  5. SEROQUEL [Concomitant]
     Active Substance: QUETIAPINE FUMARATE
  6. CARBIDOPA\LEVODOPA [Concomitant]
     Active Substance: CARBIDOPA\LEVODOPA
     Dosage: NOT PROVIDED
  7. MEPINDOLOL [Concomitant]
     Dosage: NOT PROVIDED
  8. TRAZODONE [Concomitant]
     Active Substance: TRAZODONE HYDROCHLORIDE
  9. NEUPRO [Concomitant]
     Active Substance: ROTIGOTINE
  10. VITAMIN A [Concomitant]
     Active Substance: VITAMIN A
     Dosage: NOT PROVIDED
  11. OMEGA 3 [Concomitant]
     Active Substance: CAPSAICIN
     Dosage: NOT PROVIDED
  12. VITAMIN E [Concomitant]
     Active Substance: .ALPHA.-TOCOPHEROL
     Dosage: NOT PROVIDED
  13. FOLIC ACID [Concomitant]
     Active Substance: FOLIC ACID
     Dosage: NOT PROVIDED

REACTIONS (5)
  - Weight increased [Unknown]
  - Malaise [Unknown]
  - Tremor [Unknown]
  - Hallucination [Unknown]
  - Somnolence [Unknown]

NARRATIVE: CASE EVENT DATE: 20200326
